FAERS Safety Report 11793149 (Version 1)
Quarter: 2015Q4

REPORT INFORMATION
  Report Type: Spontaneous
  Country: US (occurrence: None)
  Receive Date: 20151201
  Receipt Date: 20151201
  Transmission Date: 20160305
  Serious: Yes (Death)
  Sender: FDA-Public Use
  Company Number: None

PATIENT
  Age: 59 Year
  Sex: Female
  Weight: 90 kg

DRUGS (20)
  1. PRIMAXIN IV [Concomitant]
     Active Substance: CILASTATIN SODIUM\IMIPENEM
  2. VORICONAZOLE. [Concomitant]
     Active Substance: VORICONAZOLE
  3. GANCICLOVIR. [Concomitant]
     Active Substance: GANCICLOVIR
  4. LINEZOLID. [Concomitant]
     Active Substance: LINEZOLID
  5. BACTRIM DS [Concomitant]
     Active Substance: SULFAMETHOXAZOLE\TRIMETHOPRIM
  6. METOPROLOL [Concomitant]
     Active Substance: METOPROLOL
  7. PRAVASTATIN [Concomitant]
     Active Substance: PRAVASTATIN\PRAVASTATIN SODIUM
  8. FAMOTIDINE. [Concomitant]
     Active Substance: FAMOTIDINE
  9. PREDNISONE. [Concomitant]
     Active Substance: PREDNISONE
  10. URSODIOL. [Concomitant]
     Active Substance: URSODIOL
  11. RIFAXIMIN [Concomitant]
     Active Substance: RIFAXIMIN
  12. MULTIVITAMIN [Concomitant]
     Active Substance: VITAMINS
  13. OMEGA 3 [Concomitant]
     Active Substance: OMEGA-3 FATTY ACIDS
  14. ACYCLOVIR. [Concomitant]
     Active Substance: ACYCLOVIR
  15. HARVONI [Suspect]
     Active Substance: LEDIPASVIR\SOFOSBUVIR
     Indication: HEPATITIS C
     Dosage: 90MG/400MG
     Route: 048
     Dates: start: 20150715, end: 20150802
  16. FERROUS SULFATE [Concomitant]
     Active Substance: FERROUS SULFATE\FERROUS SULFATE, DRIED
  17. PREGABALIN. [Concomitant]
     Active Substance: PREGABALIN
  18. ASPIRIN. [Concomitant]
     Active Substance: ASPIRIN
  19. ERGOCALCIFEROL. [Concomitant]
     Active Substance: ERGOCALCIFEROL
  20. FLUDROCORTISONE [Concomitant]
     Active Substance: FLUDROCORTISONE

REACTIONS (8)
  - Sepsis [None]
  - Acidosis [None]
  - Transplant failure [None]
  - Abdominal pain [None]
  - Hepatic encephalopathy [None]
  - Vomiting [None]
  - Haemodynamic instability [None]
  - Nausea [None]

NARRATIVE: CASE EVENT DATE: 20150913
